FAERS Safety Report 20425063 (Version 1)
Quarter: 2022Q1

REPORT INFORMATION
  Report Type: Spontaneous
  Country: PL (occurrence: PL)
  Receive Date: 20220204
  Receipt Date: 20220204
  Transmission Date: 20220424
  Serious: No
  Sender: FDA-Public Use
  Company Number: PL-EXELIXIS-CABO-20043178

PATIENT
  Age: 66 Year
  Sex: Male
  Weight: 99.4 kg

DRUGS (1)
  1. CABOMETYX [Suspect]
     Active Substance: CABOZANTINIB S-MALATE
     Indication: Renal cancer
     Dosage: 40 MG
     Route: 048
     Dates: start: 201708

REACTIONS (1)
  - Hyperkeratosis [Unknown]
